FAERS Safety Report 6153362-1 (Version None)
Quarter: 2009Q2

REPORT INFORMATION
  Report Type: 
  Country: None (occurrence: None)
  Receive Date: 20090413
  Receipt Date: 20090407
  Transmission Date: 20091009
  Serious: Yes (Other)
  Sender: FDA-Public Use
  Company Number: FR-PFIZER INC-2007047472

PATIENT

DRUGS (3)
  1. CHAMPIX [Suspect]
     Indication: SMOKING CESSATION THERAPY
     Dates: start: 20070505, end: 20070513
  2. OGAST [Concomitant]
     Indication: GASTROOESOPHAGEAL REFLUX DISEASE
  3. DONORMYL [Concomitant]

REACTIONS (11)
  - ABDOMINAL PAIN [None]
  - ANOREXIA [None]
  - COUGH [None]
  - DEPRESSED MOOD [None]
  - DIARRHOEA [None]
  - DRY MOUTH [None]
  - FLATULENCE [None]
  - INSOMNIA [None]
  - NASOPHARYNGITIS [None]
  - SOMNOLENCE [None]
  - VOMITING [None]
